FAERS Safety Report 7503481-X (Version None)
Quarter: 2011Q2

REPORT INFORMATION
  Report Type: 
  Country: None (occurrence: None)
  Receive Date: 20110525
  Receipt Date: 20110523
  Transmission Date: 20111010
  Serious: Yes (Other)
  Sender: FDA-Public Use
  Company Number: DE-ROCHE-768694

PATIENT
  Sex: Male
  Weight: 68 kg

DRUGS (4)
  1. BEVACIZUMAB [Suspect]
     Indication: NON-SMALL CELL LUNG CANCER
     Dosage: LAST DOSE PRIOR TO SAE: 05 AUG 2010
     Route: 042
     Dates: start: 20100528
  2. PEMETREXED [Suspect]
     Indication: NON-SMALL CELL LUNG CANCER
     Dosage: FORM: INFUSION, LAST DOSE PRIOR TO SAE: 05 AUGUST 2010
     Route: 042
     Dates: start: 20100528
  3. BEVACIZUMAB [Suspect]
     Dosage: LAST DOSE PRIOR TO SAE: 24 MARCH 2011
     Route: 042
  4. CISPLATIN [Suspect]
     Indication: NON-SMALL CELL LUNG CANCER
     Dosage: FORM: INFUSION, LAST DOSE PRIOR TO SAE: 05 AUGUST 2010
     Route: 042
     Dates: start: 20100528

REACTIONS (1)
  - GAMMA-GLUTAMYLTRANSFERASE INCREASED [None]
